FAERS Safety Report 13511573 (Version 1)
Quarter: 2017Q2

REPORT INFORMATION
  Report Type: Spontaneous
  Country: CN (occurrence: CN)
  Receive Date: 20170504
  Receipt Date: 20170504
  Transmission Date: 20170830
  Serious: Yes (Other)
  Sender: FDA-Public Use
  Company Number: CN-PFIZER INC-2017190524

PATIENT
  Age: 37 Year
  Sex: Male

DRUGS (5)
  1. URSODEOXYCHOLIC ACID [Concomitant]
     Active Substance: URSODIOL
     Dosage: 150 MG, 3X/DAY
  2. VINCRISTINE [Suspect]
     Active Substance: VINCRISTINE
     Indication: LANGERHANS^ CELL HISTIOCYTOSIS
     Dosage: 2 MG, CYCLIC
     Dates: start: 2009
  3. CYCLOPHOSPHAMIDE. [Suspect]
     Active Substance: CYCLOPHOSPHAMIDE
     Indication: LANGERHANS^ CELL HISTIOCYTOSIS
     Dosage: 1000 MG, CYCLIC
     Dates: start: 2009
  4. EPIRUBICIN HCL [Suspect]
     Active Substance: EPIRUBICIN HYDROCHLORIDE
     Indication: LANGERHANS^ CELL HISTIOCYTOSIS
     Dosage: 90 MG, CYCLIC
     Dates: start: 2009
  5. PREDNISONE. [Suspect]
     Active Substance: PREDNISONE
     Indication: LANGERHANS^ CELL HISTIOCYTOSIS
     Dosage: 90 MG, CYCLIC
     Dates: start: 2009

REACTIONS (1)
  - Liver injury [Unknown]
